FAERS Safety Report 5158503-0 (Version None)
Quarter: 2006Q4

REPORT INFORMATION
  Report Type: 
  Country: None (occurrence: None)
  Receive Date: 20061128
  Receipt Date: 20061122
  Transmission Date: 20070319
  Serious: Yes (Other)
  Sender: FDA-Public Use
  Company Number: 2006AP05517

PATIENT
  Age: 38 Year
  Sex: Male

DRUGS (7)
  1. SEROQUEL [Suspect]
     Indication: SCHIZOPHRENIA
     Route: 048
  2. SEROQUEL [Suspect]
     Dosage: INCREASED TO 650 MG ON ADMISSION TO HOSPITAL
     Route: 048
  3. SEROQUEL [Suspect]
     Dosage: DOSE REDUCED ON DAY 38
     Route: 048
  4. CHLORPROMAZINE [Concomitant]
     Indication: HALLUCINATION
  5. CHLORPROMAZINE [Concomitant]
     Indication: DELIRIUM
  6. OLANZAPINE [Concomitant]
  7. OLANZAPINE [Concomitant]
     Dosage: DAY 52 OF HOSPITALISATION

REACTIONS (4)
  - ANXIETY [None]
  - INSOMNIA [None]
  - IRRITABILITY [None]
  - PAROXYSMAL PERCEPTUAL ALTERATION [None]
